FAERS Safety Report 25434682 (Version 2)
Quarter: 2025Q2

REPORT INFORMATION
  Report Type: Spontaneous
  Country: US (occurrence: US)
  Receive Date: 20250613
  Receipt Date: 20250613
  Transmission Date: 20250716
  Serious: No
  Sender: PFIZER
  Company Number: US-PFIZER INC-202500119782

PATIENT
  Age: 73 Year
  Sex: Male
  Weight: 79.38 kg

DRUGS (2)
  1. DESVENLAFAXINE SUCCINATE [Suspect]
     Active Substance: DESVENLAFAXINE SUCCINATE
     Dosage: 50 MG, 1X/DAY
     Route: 048
     Dates: start: 20250604
  2. PRILOSEC [Concomitant]
     Active Substance: OMEPRAZOLE MAGNESIUM
     Indication: Dyspepsia

REACTIONS (2)
  - Vision blurred [Unknown]
  - Decreased appetite [Unknown]
